FAERS Safety Report 12111847 (Version 4)
Quarter: 2016Q2

REPORT INFORMATION
  Report Type: Spontaneous
  Country: US (occurrence: US)
  Receive Date: 20160224
  Receipt Date: 20160606
  Transmission Date: 20160815
  Serious: No
  Sender: FDA-Public Use
  Company Number: US-ASTRAZENECA-2016SE16585

PATIENT
  Sex: Male

DRUGS (1)
  1. BRILINTA [Suspect]
     Active Substance: TICAGRELOR
     Indication: ACUTE CORONARY SYNDROME
     Route: 048

REACTIONS (8)
  - Pain [Unknown]
  - Infection [Unknown]
  - Contusion [Unknown]
  - Pain in jaw [Unknown]
  - Dizziness [Unknown]
  - Toothache [Unknown]
  - Asthenia [Unknown]
  - Dyspnoea [Unknown]
